FAERS Safety Report 25956506 (Version 1)
Quarter: 2025Q4

REPORT INFORMATION
  Report Type: Spontaneous
  Country: US (occurrence: None)
  Receive Date: 20251023
  Receipt Date: 20251023
  Transmission Date: 20260117
  Serious: Yes (unspecified)
  Sender: FDA-CTU
  Company Number: None

PATIENT
  Age: 26 Year
  Sex: Female
  Weight: 56.25 kg

DRUGS (2)
  1. LEVOFLOXACIN [Suspect]
     Active Substance: LEVOFLOXACIN
     Indication: Pneumonia
     Dosage: OTHER QUANTITY : 1 TABLET(S);?
     Route: 048
     Dates: start: 20251013, end: 20251014
  2. Multivitamin (biweekly) [Concomitant]

REACTIONS (6)
  - Paraesthesia [None]
  - Paraesthesia [None]
  - Paraesthesia [None]
  - Loss of personal independence in daily activities [None]
  - Neuropathy peripheral [None]
  - Carpal tunnel syndrome [None]

NARRATIVE: CASE EVENT DATE: 20251014
